FAERS Safety Report 5742405-2 (Version None)
Quarter: 2008Q2

REPORT INFORMATION
  Report Type: 
  Country: None (occurrence: None)
  Receive Date: 20080519
  Receipt Date: 20080514
  Transmission Date: 20081010
  Serious: Yes (Other)
  Sender: FDA-Public Use
  Company Number: JP-BAYER-200810893BYL

PATIENT

DRUGS (4)
  1. ADALAT [Suspect]
     Indication: DRUG USE FOR UNKNOWN INDICATION
     Route: 048
  2. SIGMART [Concomitant]
     Route: 048
  3. CLARITIN [Concomitant]
     Route: 048
  4. AGENTS USED FOR COMMON COLD [Concomitant]
     Route: 048

REACTIONS (4)
  - DRUG ERUPTION [None]
  - EYE PAIN [None]
  - PHARYNGOLARYNGEAL PAIN [None]
  - STEVENS-JOHNSON SYNDROME [None]
